FAERS Safety Report 7518721-0 (Version None)
Quarter: 2011Q2

REPORT INFORMATION
  Report Type: 
  Country: None (occurrence: None)
  Receive Date: 20110602
  Receipt Date: 20110528
  Transmission Date: 20111010
  Serious: Yes (Death)
  Sender: FDA-Public Use
  Company Number: PHHY2011MX46967

PATIENT
  Age: 55 Year
  Sex: Female

DRUGS (2)
  1. RASILEZ [Suspect]
     Indication: HYPERTENSION
     Dosage: 1 TABLET (150 MG ALISKIREN)/ DAY
     Dates: start: 20110201
  2. GALVUS [Suspect]
     Dosage: 50 MG, UNK

REACTIONS (1)
  - DEATH [None]
